FAERS Safety Report 25796886 (Version 1)
Quarter: 2025Q3

REPORT INFORMATION
  Report Type: Spontaneous
  Country: EU (occurrence: EU)
  Receive Date: 20250912
  Receipt Date: 20250912
  Transmission Date: 20251021
  Serious: Yes (Life-Threatening, Other)
  Sender: MYLAN
  Company Number: EU-EMB-M202402690-1

PATIENT
  Sex: Female
  Weight: 65 kg

DRUGS (16)
  1. VENLAFAXINE [Suspect]
     Active Substance: VENLAFAXINE HYDROCHLORIDE
     Indication: Depression
     Dosage: 150 MILLIGRAM, QD
     Dates: start: 202302, end: 202309
  2. VENLAFAXINE [Suspect]
     Active Substance: VENLAFAXINE HYDROCHLORIDE
     Dosage: 150 MILLIGRAM, QD
     Route: 048
     Dates: start: 202302, end: 202309
  3. VENLAFAXINE [Suspect]
     Active Substance: VENLAFAXINE HYDROCHLORIDE
     Dosage: 150 MILLIGRAM, QD
     Route: 048
     Dates: start: 202302, end: 202309
  4. VENLAFAXINE [Suspect]
     Active Substance: VENLAFAXINE HYDROCHLORIDE
     Dosage: 150 MILLIGRAM, QD
     Dates: start: 202302, end: 202309
  5. IBUPROFEN [Concomitant]
     Active Substance: IBUPROFEN
     Indication: Haemorrhoids thrombosed
     Dosage: 600 MILLIGRAM, BID
     Dates: start: 202309, end: 202309
  6. IBUPROFEN [Concomitant]
     Active Substance: IBUPROFEN
     Dosage: 600 MILLIGRAM, BID
     Route: 048
     Dates: start: 202309, end: 202309
  7. IBUPROFEN [Concomitant]
     Active Substance: IBUPROFEN
     Dosage: 600 MILLIGRAM, BID
     Route: 048
     Dates: start: 202309, end: 202309
  8. IBUPROFEN [Concomitant]
     Active Substance: IBUPROFEN
     Dosage: 600 MILLIGRAM, BID
     Dates: start: 202309, end: 202309
  9. ASPIRIN [Concomitant]
     Active Substance: ASPIRIN
     Indication: Prophylaxis
     Dosage: 150 MILLIGRAM, QD
     Dates: start: 202305, end: 202309
  10. ASPIRIN [Concomitant]
     Active Substance: ASPIRIN
     Dosage: 150 MILLIGRAM, QD
     Route: 048
     Dates: start: 202305, end: 202309
  11. ASPIRIN [Concomitant]
     Active Substance: ASPIRIN
     Dosage: 150 MILLIGRAM, QD
     Route: 048
     Dates: start: 202305, end: 202309
  12. ASPIRIN [Concomitant]
     Active Substance: ASPIRIN
     Dosage: 150 MILLIGRAM, QD
     Dates: start: 202305, end: 202309
  13. FOLIC ACID [Concomitant]
     Active Substance: FOLIC ACID
     Indication: Prophylaxis of neural tube defect
  14. FOLIC ACID [Concomitant]
     Active Substance: FOLIC ACID
     Route: 048
  15. FOLIC ACID [Concomitant]
     Active Substance: FOLIC ACID
     Route: 048
  16. FOLIC ACID [Concomitant]
     Active Substance: FOLIC ACID

REACTIONS (2)
  - Premature separation of placenta [Recovered/Resolved]
  - Maternal exposure during pregnancy [Unknown]

NARRATIVE: CASE EVENT DATE: 20230901
